FAERS Safety Report 13895286 (Version 1)
Quarter: 2017Q3

REPORT INFORMATION
  Report Type: Spontaneous
  Country: US (occurrence: US)
  Receive Date: 20170818
  Receipt Date: 20170818
  Transmission Date: 20171127
  Serious: Yes (Hospitalization)
  Sender: FDA-Public Use
  Company Number: None

PATIENT
  Age: 18 Year
  Sex: Female
  Weight: 98.7 kg

DRUGS (2)
  1. APRI [Suspect]
     Active Substance: DESOGESTREL\ETHINYL ESTRADIOL
     Indication: MENORRHAGIA
     Route: 048
  2. APRI [Suspect]
     Active Substance: DESOGESTREL\ETHINYL ESTRADIOL
     Indication: IRON DEFICIENCY ANAEMIA
     Route: 048

REACTIONS (1)
  - Pulmonary embolism [None]

NARRATIVE: CASE EVENT DATE: 20170816
